FAERS Safety Report 23630496 (Version 2)
Quarter: 2024Q1

REPORT INFORMATION
  Report Type: Spontaneous
  Country: AT (occurrence: AT)
  Receive Date: 20240314
  Receipt Date: 20240326
  Transmission Date: 20240410
  Serious: Yes (Hospitalization, Other)
  Sender: FDA-Public Use
  Company Number: AT-PFIZER INC-PV202400028731

PATIENT
  Age: 72 Year
  Sex: Female

DRUGS (8)
  1. XGEVA [Suspect]
     Active Substance: DENOSUMAB
     Indication: Breast cancer
     Dosage: UNK
     Route: 065
  2. IBRANCE [Suspect]
     Active Substance: PALBOCICLIB
     Indication: Breast cancer
     Dosage: 100 MILLIGRAM
     Route: 065
     Dates: start: 202308
  3. IBRANCE [Suspect]
     Active Substance: PALBOCICLIB
     Dosage: 100 MILLIGRAM
     Route: 065
     Dates: start: 202202
  4. IBRANCE [Suspect]
     Active Substance: PALBOCICLIB
     Dosage: 125 MILLIGRAM
     Route: 065
     Dates: start: 202002
  5. IBRANCE [Suspect]
     Active Substance: PALBOCICLIB
     Dosage: 75 MILLIGRAM
     Route: 065
     Dates: start: 202310
  6. IBRANCE [Suspect]
     Active Substance: PALBOCICLIB
     Dosage: 75 MILLIGRAM
     Route: 065
     Dates: start: 202301
  7. LETROZOLE [Suspect]
     Active Substance: LETROZOLE
     Indication: Breast cancer
     Dosage: 2.5 MILLIGRAM
     Route: 065
     Dates: start: 202002
  8. CALCIUM CARBONATE\CHOLECALCIFEROL [Concomitant]
     Active Substance: CALCIUM CARBONATE\CHOLECALCIFEROL
     Dosage: UNK
     Dates: start: 202002

REACTIONS (10)
  - Spinal pain [Recovering/Resolving]
  - Spinal osteoarthritis [Unknown]
  - Intervertebral disc protrusion [Unknown]
  - Cholangitis infective [Recovered/Resolved]
  - Neutropenia [Recovered/Resolved]
  - Bile duct stenosis [Recovered/Resolved]
  - Vomiting [Recovered/Resolved]
  - Transaminases increased [Recovered/Resolved]
  - Blood bilirubin increased [Recovered/Resolved]
  - Jaundice [Recovered/Resolved]

NARRATIVE: CASE EVENT DATE: 20210401
